FAERS Safety Report 17530402 (Version 2)
Quarter: 2020Q2

REPORT INFORMATION
  Report Type: Spontaneous
  Country: US (occurrence: US)
  Receive Date: 20200312
  Receipt Date: 20200408
  Transmission Date: 20200713
  Serious: No
  Sender: FDA-Public Use
  Company Number: US-ASTRAZENECA-2020SE28567

PATIENT
  Age: 23859 Day
  Sex: Female
  Weight: 89.8 kg

DRUGS (4)
  1. BYDUREON [Suspect]
     Active Substance: EXENATIDE
     Indication: TYPE 2 DIABETES MELLITUS
     Dosage: STARTED A YEAR AGO
     Route: 058
  2. BYDUREON [Suspect]
     Active Substance: EXENATIDE
     Indication: TYPE 2 DIABETES MELLITUS
     Dosage: SWITCHED BACK TO BYDUREON PEN ABOUT TWO MONTH AGO
     Route: 058
  3. BYDUREON [Suspect]
     Active Substance: EXENATIDE
     Indication: TYPE 2 DIABETES MELLITUS
     Dosage: SWITCHED TO A NON-AZ PEN FOR 6-7 MONTHS
     Route: 065
  4. NOVALENE [Concomitant]
     Indication: DIABETES MELLITUS
     Dosage: 70/30, 45 UNITS IN THE MORNING AND 35 UNITS AT BEDTIME TWO TIMES A DAY
     Route: 058

REACTIONS (5)
  - Drug dose omission by device [Unknown]
  - Fear [Unknown]
  - Nervousness [Unknown]
  - Tremor [Unknown]
  - Product packaging quantity issue [Unknown]

NARRATIVE: CASE EVENT DATE: 20200213
